FAERS Safety Report 9913841 (Version 1)
Quarter: 2014Q1

REPORT INFORMATION
  Report Type: Spontaneous
  Country: US (occurrence: None)
  Receive Date: 20140218
  Receipt Date: 20140218
  Transmission Date: 20141002
  Serious: Yes (Other)
  Sender: FDA-Public Use
  Company Number: None

PATIENT
  Age: 33 Year
  Sex: Female
  Weight: 70.31 kg

DRUGS (6)
  1. AMPHETAMINE ASPARTATE\AMPHETAMINE SULFATE\DEXTROAMPHETAMINE SACCHARATE\DEXTROAMPHETAMINE SULFATE [Suspect]
     Indication: ATTENTION DEFICIT/HYPERACTIVITY DISORDER
     Route: 048
     Dates: start: 20140108, end: 20140131
  2. RITALIN [Concomitant]
  3. STRATERA [Concomitant]
  4. CONCERTA [Concomitant]
  5. VYVANSE [Concomitant]
  6. ADDERALL [Concomitant]

REACTIONS (4)
  - Feeling abnormal [None]
  - Thinking abnormal [None]
  - Disturbance in attention [None]
  - Product substitution issue [None]
